FAERS Safety Report 9526616 (Version 1)
Quarter: 2013Q3

REPORT INFORMATION
  Report Type: Spontaneous
  Country: MA (occurrence: MA)
  Receive Date: 20130916
  Receipt Date: 20130916
  Transmission Date: 20140515
  Serious: Yes (Other)
  Sender: FDA-Public Use
  Company Number: PHHY2013MA099976

PATIENT
  Age: 46 Year
  Sex: Female

DRUGS (3)
  1. 5-FLUOROURACIL [Suspect]
     Indication: BREAST CANCER
  2. DOXORUBICIN [Suspect]
     Indication: BREAST CANCER
  3. CYCLOPHOSPHAMIDE [Suspect]
     Indication: BREAST CANCER

REACTIONS (3)
  - Ischaemic stroke [Recovered/Resolved]
  - Sensation of heaviness [Recovered/Resolved]
  - Hemiparesis [Recovering/Resolving]
